FAERS Safety Report 16463539 (Version 1)
Quarter: 2019Q2

REPORT INFORMATION
  Report Type: Report from Study
  Country: US (occurrence: US)
  Receive Date: 20190621
  Receipt Date: 20190621
  Transmission Date: 20190711
  Serious: Yes (Hospitalization, Other)
  Sender: FDA-Public Use
  Company Number: US-PFIZER INC-2019264550

PATIENT
  Age: 34 Year
  Sex: Female

DRUGS (2)
  1. LETROZOLE. [Suspect]
     Active Substance: LETROZOLE
     Dosage: UNK, DAILY
  2. IBRANCE [Suspect]
     Active Substance: PALBOCICLIB
     Indication: BREAST CANCER
     Dosage: 125 MG, CYCLIC (125 MG DAILY FOR 21 DAYS AND OFF 7 DAYS)
     Route: 048
     Dates: start: 20190513

REACTIONS (9)
  - Bone marrow failure [Unknown]
  - Fatigue [Unknown]
  - Platelet count decreased [Unknown]
  - Dyspnoea [Unknown]
  - Red blood cell count decreased [Unknown]
  - Sleep disorder [Unknown]
  - Cardiac disorder [Unknown]
  - Chest discomfort [Unknown]
  - White blood cell count decreased [Unknown]

NARRATIVE: CASE EVENT DATE: 2019
